FAERS Safety Report 9999029 (Version 2)
Quarter: 2014Q2

REPORT INFORMATION
  Report Type: Spontaneous
  Country: US (occurrence: None)
  Receive Date: 20140310
  Receipt Date: 20140407
  Transmission Date: 20141212
  Serious: Yes (Hospitalization, Other)
  Sender: FDA-Public Use
  Company Number: 2014P1001847

PATIENT
  Age: 34 Year
  Sex: Female
  Weight: 120.2 kg

DRUGS (5)
  1. TROKENDI XR [Suspect]
     Indication: WEIGHT CONTROL
     Dates: start: 201311
  2. PHENTERMINE [Suspect]
  3. PROZAC [Concomitant]
  4. SYNTHROID [Concomitant]
  5. ANTIDEPRESSANT [Concomitant]

REACTIONS (19)
  - Off label use [None]
  - Loss of consciousness [None]
  - Mental disorder [None]
  - Abnormal behaviour [None]
  - Daydreaming [None]
  - Agitation [None]
  - Insomnia [None]
  - Memory impairment [None]
  - Mental disorder [None]
  - Paranoia [None]
  - Aphagia [None]
  - Urinary tract infection [None]
  - Thyroid disorder [None]
  - Hallucination [None]
  - Confusional state [None]
  - Disorientation [None]
  - Bundle branch block right [None]
  - Hypokalaemia [None]
  - Marital problem [None]
